FAERS Safety Report 15588668 (Version 1)
Quarter: 2018Q4

REPORT INFORMATION
  Report Type: Spontaneous
  Country: GB (occurrence: GB)
  Receive Date: 20181106
  Receipt Date: 20181106
  Transmission Date: 20190205
  Serious: Yes (Other)
  Sender: FDA-Public Use
  Company Number: PHHY2018GB144803

PATIENT
  Sex: Female

DRUGS (3)
  1. VELCADE [Suspect]
     Active Substance: BORTEZOMIB
     Indication: PRODUCT USED FOR UNKNOWN INDICATION
     Dosage: UNK
     Route: 065
  2. PANOBINOSTAT [Suspect]
     Active Substance: PANOBINOSTAT
     Dosage: 20 MG, Q3W
     Route: 065
  3. PANOBINOSTAT [Suspect]
     Active Substance: PANOBINOSTAT
     Indication: PRODUCT USED FOR UNKNOWN INDICATION
     Dosage: UNK
     Route: 065

REACTIONS (2)
  - Cytopenia [Recovered/Resolved]
  - Fatigue [Recovered/Resolved]
